FAERS Safety Report 9200111 (Version 3)
Quarter: 2014Q1

REPORT INFORMATION
  Report Type: Spontaneous
  Country: US (occurrence: US)
  Receive Date: 20130329
  Receipt Date: 20140116
  Transmission Date: 20141002
  Serious: Yes (Hospitalization, Other)
  Sender: FDA-Public Use
  Company Number: US-009507513-1303USA010740

PATIENT
  Sex: Female
  Weight: 69.84 kg

DRUGS (5)
  1. FOSAMAX [Suspect]
     Dosage: UNK
  2. FOSAMAX PLUS D [Suspect]
     Dosage: UNK
     Route: 048
     Dates: end: 2011
  3. ALENDRONATE SODIUM [Suspect]
     Dosage: UNK
     Dates: end: 2011
  4. BONIVA [Suspect]
     Dosage: UNK
     Dates: end: 2011
  5. ACTONEL [Suspect]
     Dosage: UNK
     Dates: end: 2011

REACTIONS (50)
  - Intramedullary rod insertion [Unknown]
  - Spinal fusion surgery [Unknown]
  - Spinal laminectomy [Unknown]
  - Hip arthroplasty [Unknown]
  - Knee arthroplasty [Unknown]
  - Hip arthroplasty [Unknown]
  - Rib fracture [Unknown]
  - Abdominoplasty [Unknown]
  - Device related infection [Unknown]
  - Hip arthroplasty [Unknown]
  - Femur fracture [Unknown]
  - Fracture [Unknown]
  - Crohn^s disease [Unknown]
  - Hypertension [Unknown]
  - Deep vein thrombosis [Unknown]
  - Osteoarthritis [Unknown]
  - Restless legs syndrome [Unknown]
  - Anxiety disorder [Unknown]
  - Bladder irritation [Unknown]
  - Salpingo-oophorectomy bilateral [Unknown]
  - Appendicectomy [Unknown]
  - Toe operation [Unknown]
  - Ankle operation [Unknown]
  - Osteoporosis [Unknown]
  - Knee operation [Unknown]
  - Device related infection [Unknown]
  - Osteoarthritis [Unknown]
  - Clavicle fracture [Unknown]
  - Patella fracture [Unknown]
  - Drug intolerance [Unknown]
  - Vertebroplasty [Unknown]
  - Fall [Unknown]
  - Comminuted fracture [Unknown]
  - Thrombectomy [Unknown]
  - Hysterectomy [Unknown]
  - Rib fracture [Unknown]
  - Cataract operation [Unknown]
  - Colitis microscopic [Unknown]
  - Muscular weakness [Not Recovered/Not Resolved]
  - Renal cyst [Unknown]
  - Hepatic cyst [Unknown]
  - Hypothyroidism [Unknown]
  - Spondylolisthesis [Unknown]
  - Spinal column stenosis [Unknown]
  - Intervertebral disc degeneration [Unknown]
  - Scoliosis [Unknown]
  - Gastric perforation [Unknown]
  - Pollakiuria [Unknown]
  - Bradycardia [Unknown]
  - Diarrhoea [Unknown]
